FAERS Safety Report 8723053 (Version 2)
Quarter: 2012Q4

REPORT INFORMATION
  Report Type: Report from Study
  Country: DE (occurrence: DE)
  Receive Date: 20120814
  Receipt Date: 20121016
  Transmission Date: 20130627
  Serious: Yes (Hospitalization)
  Sender: FDA-Public Use
  Company Number: DE-CELGENEUS-062-21880-12080555

PATIENT
  Age: 79 Year
  Sex: Female
  Weight: 68.8 kg

DRUGS (7)
  1. REVLIMID [Suspect]
     Indication: MULTIPLE MYELOMA
     Dosage: 20 Milligram
     Route: 048
     Dates: start: 20111128, end: 20111218
  2. REVLIMID [Suspect]
     Dosage: 10 Milligram
     Route: 048
     Dates: start: 20111226, end: 20120115
  3. REVLIMID [Suspect]
     Dosage: 10 Milligram
     Route: 048
     Dates: start: 20120716, end: 20120727
  4. DEXAMETHASONE [Concomitant]
     Indication: IMMUNOSUPPRESSION
     Dosage: 2 Milligram
     Route: 048
     Dates: start: 20111128, end: 20111225
  5. DEXAMETHASONE [Concomitant]
     Dosage: 2 Milligram
     Route: 048
     Dates: start: 20120611, end: 20120708
  6. ASPIRINE [Concomitant]
     Indication: ANTICOAGULANT THERAPY
     Route: 065
  7. ASPIRINE [Concomitant]
     Indication: ANTIPLATELET THERAPY

REACTIONS (1)
  - Leukocytoclastic vasculitis [Recovered/Resolved]
